FAERS Safety Report 20479591 (Version 1)
Quarter: 2022Q1

REPORT INFORMATION
  Report Type: Spontaneous
  Country: US (occurrence: US)
  Receive Date: 20220216
  Receipt Date: 20220216
  Transmission Date: 20220423
  Serious: Yes (Death, Hospitalization, Other)
  Sender: FDA-Public Use
  Company Number: US-LUPIN PHARMACEUTICALS INC.-2022-02009

PATIENT
  Age: 27 Year
  Sex: Male

DRUGS (3)
  1. MORPHINE [Suspect]
     Active Substance: MORPHINE
     Indication: Complex regional pain syndrome
     Dosage: UNK (INTRAVENOUS INJECTION OF ORAL OPIOID TABLETS)
     Route: 042
  2. HYDROMORPHONE [Suspect]
     Active Substance: HYDROMORPHONE
     Indication: Complex regional pain syndrome
     Dosage: UNK (INTRAVENOUS INJECTION OF ORAL OPIOID TABLETS)
     Route: 042
  3. HYDROCODONE [Suspect]
     Active Substance: HYDROCODONE
     Indication: Complex regional pain syndrome
     Dosage: UNK (INTRAVENOUS INJECTION OF ORAL OPIOID TABLETS)
     Route: 042

REACTIONS (6)
  - Vasculitis necrotising [Fatal]
  - Accidental overdose [Fatal]
  - Intentional product use issue [Fatal]
  - Reaction to excipient [Fatal]
  - Drug abuse [Fatal]
  - Compartment syndrome [Recovering/Resolving]
